FAERS Safety Report 5609762-9 (Version None)
Quarter: 2008Q1

REPORT INFORMATION
  Report Type: 
  Country: None (occurrence: None)
  Receive Date: 20080131
  Receipt Date: 20071129
  Transmission Date: 20080703
  Serious: No
  Sender: FDA-Public Use
  Company Number: US-BAYER-200713983BCC

PATIENT
  Age: 65 Year
  Sex: Male
  Weight: 79 kg

DRUGS (4)
  1. ALEVE [Suspect]
     Indication: HERPES ZOSTER
     Dosage: UNIT DOSE: 220 MG
     Route: 048
  2. LIPITOR [Concomitant]
  3. SYNTHROID [Concomitant]
  4. SLEEPING PILL [Concomitant]

REACTIONS (1)
  - POST HERPETIC NEURALGIA [None]
